FAERS Safety Report 9015617 (Version 1)
Quarter: 2013Q1

REPORT INFORMATION
  Report Type: Spontaneous
  Country: NO (occurrence: NO)
  Receive Date: 20130116
  Receipt Date: 20130116
  Transmission Date: 20140127
  Serious: Yes (Hospitalization, Other)
  Sender: FDA-Public Use
  Company Number: NO-ELI_LILLY_AND_COMPANY-NO201301003272

PATIENT
  Sex: Male

DRUGS (3)
  1. ZYPREXA [Suspect]
     Indication: SCHIZOPHRENIA
     Dosage: 20 MG, QD
     Route: 048
     Dates: end: 20130104
  2. LYRICA [Concomitant]
     Indication: MYALGIA
     Dosage: 1500 MG, UNK
  3. TRUXAL [Concomitant]
     Dosage: UNK, PRN

REACTIONS (7)
  - Neurological symptom [Unknown]
  - Gait disturbance [Unknown]
  - Speech disorder [Unknown]
  - Amnesia [Unknown]
  - Myalgia [Unknown]
  - Blood creatine phosphokinase increased [Recovering/Resolving]
  - Rhabdomyolysis [Unknown]
